FAERS Safety Report 4740782-2 (Version None)
Quarter: 2005Q3

REPORT INFORMATION
  Report Type: 
  Country: None (occurrence: None)
  Receive Date: 20050804
  Receipt Date: 20050421
  Transmission Date: 20060218
  Serious: No
  Sender: FDA-Public Use
  Company Number: FACT0500404

PATIENT
  Age: 54 Year
  Sex: Female
  Weight: 84.8 kg

DRUGS (7)
  1. FACTIVE [Suspect]
     Indication: RESPIRATORY TRACT INFECTION BACTERIAL
     Dosage: 320 MG, QD, ORAL
     Route: 048
     Dates: start: 20050419, end: 20050420
  2. AVELOX [Suspect]
  3. ESTROVEN [Concomitant]
  4. CLARITIN-D [Concomitant]
  5. FOSAMAX [Concomitant]
  6. VITAMINS [Concomitant]
  7. CALCIUM WITH VITAMIN D (CALCIUM PHOSPHATE, CALCIUM SODIUM LACTATE, ERG [Concomitant]

REACTIONS (2)
  - EYE PAIN [None]
  - RASH ERYTHEMATOUS [None]
